FAERS Safety Report 10253897 (Version 1)
Quarter: 2014Q2

REPORT INFORMATION
  Report Type: Spontaneous
  Country: BR (occurrence: BR)
  Receive Date: 20140623
  Receipt Date: 20140623
  Transmission Date: 20141212
  Serious: Yes (Hospitalization)
  Sender: FDA-Public Use
  Company Number: BR-PFIZER INC-2014165727

PATIENT
  Age: 80 Year
  Sex: Male
  Weight: 60 kg

DRUGS (4)
  1. CITALOR [Suspect]
     Indication: BLOOD CHOLESTEROL
     Dosage: 10 MG, UNK
     Route: 048
     Dates: start: 2013, end: 201405
  2. SOMALGIN [Concomitant]
     Indication: CARDIAC DISORDER
     Dosage: 1 DF, 1X/DAY
  3. DIAMICRON MR [Concomitant]
     Indication: DIABETES MELLITUS
     Dosage: 2 DF, DAILY
  4. GLIFAGE [Concomitant]
     Indication: DIABETES MELLITUS
     Dosage: 2 DF, DAILY

REACTIONS (1)
  - Cerebrovascular accident [Unknown]
